FAERS Safety Report 22319767 (Version 1)
Quarter: 2023Q2

REPORT INFORMATION
  Report Type: Report from Study
  Country: EG (occurrence: EG)
  Receive Date: 20230515
  Receipt Date: 20230515
  Transmission Date: 20230721
  Serious: Yes (Other)
  Sender: FDA-Public Use
  Company Number: EG-002147023-NVSC2023EG107693

PATIENT
  Age: 46 Year
  Sex: Male

DRUGS (4)
  1. LEQVIO [Suspect]
     Active Substance: INCLISIRAN SODIUM
     Indication: Hypercholesterolaemia
     Dosage: UNK (ONE DOSE INITIALLY, SECOND DOSE AFTER 3 MONTHS AND THEN TO BE EVERY 6 MONTHS)
     Route: 058
     Dates: start: 202212, end: 202301
  2. DAPAGLIFLOZIN [Concomitant]
     Active Substance: DAPAGLIFLOZIN
     Indication: Diabetes mellitus
     Dosage: 1 DOSAGE FORM, QD (5 MONTHS AGO)
     Route: 048
  3. BISOPROLOL FUMARATE [Concomitant]
     Active Substance: BISOPROLOL FUMARATE
     Indication: Hypertension
     Dosage: 1 DOSAGE FORM, QD (4 OR 5 MONTHS AGO)
     Route: 048
  4. NEXIUM [Concomitant]
     Active Substance: ESOMEPRAZOLE MAGNESIUM
     Indication: Abdominal pain upper
     Dosage: 1 DOSAGE FORM, QD (4 MONTHS AGO)
     Route: 048

REACTIONS (2)
  - Blood cholesterol increased [Not Recovered/Not Resolved]
  - Product availability issue [Unknown]

NARRATIVE: CASE EVENT DATE: 20230410
